FAERS Safety Report 9176964 (Version 1)
Quarter: 2013Q1

REPORT INFORMATION
  Report Type: Spontaneous
  Country: US (occurrence: US)
  Receive Date: 20130321
  Receipt Date: 20130321
  Transmission Date: 20140127
  Serious: No
  Sender: FDA-Public Use
  Company Number: US-PFIZER INC-2013088804

PATIENT
  Sex: 0

DRUGS (1)
  1. VIAGRA [Suspect]
     Dosage: 100 MG, 3 TIMES DURING SAME WEEK

REACTIONS (1)
  - Heart rate increased [Unknown]
